FAERS Safety Report 25033737 (Version 3)
Quarter: 2025Q3

REPORT INFORMATION
  Report Type: Spontaneous
  Country: JP (occurrence: JP)
  Receive Date: 20250303
  Receipt Date: 20250911
  Transmission Date: 20251021
  Serious: Yes (Hospitalization, Other)
  Sender: TAKEDA
  Company Number: JP-TAKEDA-2025TJP002314

PATIENT
  Age: 7 Year
  Sex: Male
  Weight: 33.2 kg

DRUGS (11)
  1. INTUNIV [Suspect]
     Active Substance: GUANFACINE HYDROCHLORIDE
     Indication: Logorrhoea
     Dosage: 2 MILLIGRAM, QD
     Dates: start: 20220928
  2. INTUNIV [Suspect]
     Active Substance: GUANFACINE HYDROCHLORIDE
     Indication: Hyperkinesia
  3. INTUNIV [Suspect]
     Active Substance: GUANFACINE HYDROCHLORIDE
  4. RISPERIDONE [Concomitant]
     Active Substance: RISPERIDONE
     Indication: Autism spectrum disorder
     Dosage: 0.3 MILLIGRAM, TID
     Dates: start: 20190425
  5. RISPERIDONE [Concomitant]
     Active Substance: RISPERIDONE
     Dosage: 0.5 MILLIGRAM, TID
     Dates: start: 20190930
  6. RISPERIDONE [Concomitant]
     Active Substance: RISPERIDONE
  7. RISPERIDONE [Concomitant]
     Active Substance: RISPERIDONE
  8. RISPERIDONE [Concomitant]
     Active Substance: RISPERIDONE
  9. RISPERIDONE [Concomitant]
     Active Substance: RISPERIDONE
  10. MELATOBEL [Concomitant]
     Indication: Attention deficit hyperactivity disorder
     Dosage: 4 MILLIGRAM, QD
     Dates: start: 20220421, end: 202502
  11. MELATOBEL [Concomitant]

REACTIONS (7)
  - Acidosis [Recovered/Resolved]
  - Hyperlactacidaemia [Recovering/Resolving]
  - Hypercapnia [Recovered/Resolved]
  - Hypotension [Recovered/Resolved]
  - Bradycardia [Recovered/Resolved]
  - Somnolence [Recovering/Resolving]
  - Back pain [Recovered/Resolved]

NARRATIVE: CASE EVENT DATE: 20220901
